FAERS Safety Report 8048937-9 (Version None)
Quarter: 2012Q1

REPORT INFORMATION
  Report Type: 
  Country: None (occurrence: None)
  Receive Date: 20120117
  Receipt Date: 20120113
  Transmission Date: 20120608
  Serious: No
  Sender: FDA-Public Use
  Company Number: US-PFIZER INC-2012011060

PATIENT
  Sex: Female
  Weight: 78.005 kg

DRUGS (9)
  1. ZYVOX [Suspect]
     Indication: SUNBURN
     Dosage: 600 MG, 2X/DAY
     Dates: start: 20111201
  2. EVISTA [Concomitant]
     Indication: BONE DISORDER
     Dosage: 60 MG, DAILY
  3. MULTI-VITAMINS [Concomitant]
     Dosage: UNK
  4. LOSARTAN POTASSIUM [Concomitant]
     Indication: BLOOD PRESSURE ABNORMAL
     Dosage: 50 MG, DAILY
  5. SITAGLIPTIN AND METFORMIN HYDROCHLORIDE [Concomitant]
     Indication: DIABETES MELLITUS
     Dosage: 50/1000 MG,DAILY
  6. VERAPAMIL [Concomitant]
     Indication: CARDIAC DISORDER
     Dosage: 180 MG, DAILY
  7. SIMVASTATIN [Concomitant]
     Indication: BLOOD CHOLESTEROL ABNORMAL
     Dosage: 20 MG, DAILY
  8. ACETYLSALICYLIC ACID [Concomitant]
     Dosage: 325 MG, DAILY
  9. LEVOFLOXACIN [Suspect]
     Indication: SUNBURN
     Dosage: UNK
     Route: 042
     Dates: start: 20111201, end: 20111201

REACTIONS (5)
  - DIARRHOEA [None]
  - VAGINAL INFECTION [None]
  - NAUSEA [None]
  - HYPERSENSITIVITY [None]
  - DECREASED APPETITE [None]
